FAERS Safety Report 7737496-3 (Version None)
Quarter: 2011Q3

REPORT INFORMATION
  Report Type: 
  Country: None (occurrence: None)
  Receive Date: 20110908
  Receipt Date: 20110902
  Transmission Date: 20111222
  Serious: Yes (Hospitalization)
  Sender: FDA-Public Use
  Company Number: JP-GLAXOSMITHKLINE-B0740797A

PATIENT
  Age: 88 Year
  Sex: Male
  Weight: 60 kg

DRUGS (12)
  1. ALLOPURINOL [Concomitant]
     Route: 048
  2. NITOROL R [Concomitant]
     Route: 065
  3. MUCOSTA [Concomitant]
     Route: 048
  4. VOLTAREN [Concomitant]
     Route: 054
  5. SELTOUCH [Concomitant]
     Route: 061
  6. DOXAZOSIN MESYLATE [Concomitant]
     Route: 048
  7. ACETAMINOPHEN [Concomitant]
     Route: 065
  8. VALTREX [Suspect]
     Indication: HERPES ZOSTER
     Dosage: 500MG PER DAY
     Route: 048
     Dates: start: 20110813, end: 20110814
  9. TICLOPIDINE HCL [Concomitant]
     Route: 048
  10. MARZULENE [Concomitant]
     Route: 048
  11. METHYCOBAL [Concomitant]
     Route: 048
  12. CONIEL [Concomitant]
     Route: 048

REACTIONS (2)
  - DELIRIUM [None]
  - ALTERED STATE OF CONSCIOUSNESS [None]
